FAERS Safety Report 23987000 (Version 5)
Quarter: 2024Q4

REPORT INFORMATION
  Report Type: Spontaneous
  Country: US (occurrence: US)
  Receive Date: 20240618
  Receipt Date: 20241007
  Transmission Date: 20250114
  Serious: No
  Sender: PFIZER
  Company Number: US-PFIZER INC-202400194240

PATIENT
  Age: 12 Year
  Sex: Male

DRUGS (2)
  1. NGENLA [Suspect]
     Active Substance: SOMATROGON-GHLA
     Dosage: 22 MG
     Dates: start: 20240507, end: 20240627
  2. NGENLA [Suspect]
     Active Substance: SOMATROGON-GHLA
     Dosage: 22 MG
     Dates: start: 20240507, end: 20240627

REACTIONS (4)
  - Injection site pain [Unknown]
  - Injection site mass [Unknown]
  - Injection site rash [Unknown]
  - Injection site pruritus [Unknown]
